FAERS Safety Report 10486867 (Version 1)
Quarter: 2014Q4

REPORT INFORMATION
  Report Type: Spontaneous
  Country: US (occurrence: US)
  Receive Date: 20141001
  Receipt Date: 20141001
  Transmission Date: 20150528
  Serious: No
  Sender: FDA-Public Use
  Company Number: US-BAYER-2014-145673

PATIENT
  Age: 48 Year
  Sex: Female
  Weight: 67.12 kg

DRUGS (5)
  1. PROZAC [Concomitant]
     Active Substance: FLUOXETINE HYDROCHLORIDE
  2. ALEVE [Suspect]
     Active Substance: NAPROXEN SODIUM
     Indication: NECK PAIN
     Dosage: 2 DF, BID
     Route: 048
     Dates: start: 20140921, end: 20140924
  3. NEURONTIN [Concomitant]
     Active Substance: GABAPENTIN
  4. ESTROGEN [Concomitant]
     Active Substance: ESTRONE\SUS SCROFA OVARY
  5. ALEVE [Suspect]
     Active Substance: NAPROXEN SODIUM
     Indication: BACK PAIN

REACTIONS (2)
  - Extra dose administered [None]
  - Intentional product misuse [None]

NARRATIVE: CASE EVENT DATE: 20140921
